FAERS Safety Report 7574692-2 (Version None)
Quarter: 2011Q2

REPORT INFORMATION
  Report Type: 
  Country: None (occurrence: None)
  Receive Date: 20110627
  Receipt Date: 20110621
  Transmission Date: 20111010
  Serious: No
  Sender: FDA-Public Use
  Company Number: US-PFIZER INC-2011137149

PATIENT
  Sex: Male

DRUGS (4)
  1. SUTENT [Suspect]
     Dosage: 37.5 MG (3 CAPSULES 12.5 MG DAILY), 1X/DAY
     Route: 048
  2. AMLODIPINE [Concomitant]
     Dosage: 5 MG, UNK
  3. NEBIVOLOL [Concomitant]
     Dosage: 5 MG, UNK
  4. LORTAB [Concomitant]
     Dosage: 5 TAB

REACTIONS (4)
  - COUGH [None]
  - FEELING HOT [None]
  - CHEST PAIN [None]
  - CHILLS [None]
